FAERS Safety Report 23600401 (Version 2)
Quarter: 2024Q2

REPORT INFORMATION
  Report Type: Spontaneous
  Country: US (occurrence: US)
  Receive Date: 20240306
  Receipt Date: 20240429
  Transmission Date: 20240716
  Serious: Yes (Other)
  Sender: FDA-Public Use
  Company Number: US-PFIZER INC-202400050938

PATIENT
  Age: 13 Year
  Sex: Male
  Weight: 54.43 kg

DRUGS (3)
  1. NGENLA [Suspect]
     Active Substance: SOMATROGON-GHLA
     Indication: Growth disorder
     Dosage: UNK
  2. GENOTROPIN [Suspect]
     Active Substance: SOMATROPIN
     Indication: Growth disorder
     Dosage: UNK
  3. NORDITROPIN [Suspect]
     Active Substance: SOMATROPIN
     Dosage: 10 MG, 1X/DAY (EVERY NIGHT BEFORE BED)

REACTIONS (1)
  - Neoplasm malignant [Unknown]
